FAERS Safety Report 17051745 (Version 1)
Quarter: 2019Q4

REPORT INFORMATION
  Report Type: Spontaneous
  Country: JP (occurrence: JP)
  Receive Date: 20191120
  Receipt Date: 20191120
  Transmission Date: 20200122
  Serious: Yes (Death)
  Sender: FDA-Public Use
  Company Number: JP-ROCHE-2474145

PATIENT
  Age: 75 Year
  Sex: Male

DRUGS (1)
  1. ACTEMRA [Suspect]
     Active Substance: TOCILIZUMAB
     Indication: NON-SMALL CELL LUNG CANCER STAGE IIIA
     Route: 065

REACTIONS (3)
  - Non-small cell lung cancer stage IIIA [Fatal]
  - Off label use [Unknown]
  - Intentional product use issue [Unknown]
